FAERS Safety Report 16877833 (Version 1)
Quarter: 2019Q4

REPORT INFORMATION
  Report Type: Spontaneous
  Country: DE (occurrence: DE)
  Receive Date: 20191002
  Receipt Date: 20191002
  Transmission Date: 20200122
  Serious: Yes (Other)
  Sender: FDA-Public Use
  Company Number: DE-ENDO PHARMACEUTICALS INC-2019-104669

PATIENT
  Age: 58 Year
  Sex: Male

DRUGS (2)
  1. AVEED [Suspect]
     Active Substance: TESTOSTERONE UNDECANOATE
     Indication: PRIMARY HYPOGONADISM
     Dosage: UNK UNKNOWN, UNKNOWN
     Route: 065
     Dates: start: 201711
  2. AVEED [Suspect]
     Active Substance: TESTOSTERONE UNDECANOATE
     Dosage: UNK UNKNOWN, UNKNOWN
     Route: 065
     Dates: start: 20190506

REACTIONS (6)
  - Dyspnoea [Recovered/Resolved]
  - Throat irritation [Unknown]
  - Incorrect dose administered [Unknown]
  - Paraesthesia [Recovered/Resolved]
  - Syncope [Unknown]
  - Vertigo [Recovered/Resolved]

NARRATIVE: CASE EVENT DATE: 20190506
